FAERS Safety Report 23268729 (Version 1)
Quarter: 2023Q4

REPORT INFORMATION
  Report Type: Spontaneous
  Country: US (occurrence: US)
  Receive Date: 20231206
  Receipt Date: 20231206
  Transmission Date: 20240110
  Serious: No
  Sender: FDA-Public Use
  Company Number: US-PFIZER INC-202300422479

PATIENT
  Age: 53 Year
  Sex: Female
  Weight: 58.97 kg

DRUGS (16)
  1. OXBRYTA [Suspect]
     Active Substance: VOXELOTOR
     Indication: Sickle cell anaemia with crisis
     Dosage: 1500 MG, 1X/DAY (3 AT ONE TIME)
     Route: 048
     Dates: start: 20150215
  2. OXBRYTA [Suspect]
     Active Substance: VOXELOTOR
     Dosage: 1000 MG, 1X/DAY (2 PILLS)
     Route: 048
  3. OMEPRAZOLE [Concomitant]
     Active Substance: OMEPRAZOLE
     Dosage: 40 MG, 1X/DAY (ONE TIME A DAY)
  4. LISINOPRIL [Concomitant]
     Active Substance: LISINOPRIL
     Dosage: 2.5 MG, 1X/DAY (ONCE DAILY)
  5. ZOFRAN [Concomitant]
     Active Substance: ONDANSETRON HYDROCHLORIDE
     Indication: Nausea
     Dosage: 4 MG, AS NEEDED (4 TIMES A DAY IF NEEDED)
  6. COLCRYS [Concomitant]
     Active Substance: COLCHICINE
     Indication: Gout
     Dosage: 0.6 MG, 2X/DAY (ONE TWICE A DAY)
  7. PEPCID [Concomitant]
     Active Substance: FAMOTIDINE
     Dosage: 40 MG, 1X/DAY (ONE AT BED TIME)
  8. HYDROCODONE [Concomitant]
     Active Substance: HYDROCODONE
     Dosage: UNK, 4X/DAY (10/325 TAKES THAT 4 TIMES A DAY)
  9. DICYCLOMINE HYDROCHLORIDE [Concomitant]
     Active Substance: DICYCLOMINE HYDROCHLORIDE
     Dosage: UNK
  10. WARFARIN [Concomitant]
     Active Substance: WARFARIN
     Dosage: UNK, 1X/DAY (ONE TIME A DAY)
  11. BENTYL [Concomitant]
     Active Substance: DICYCLOMINE HYDROCHLORIDE
     Dosage: 20 MG, 4X/DAY (FOUR TIMES DAILY. I CAN HAVE IT WITH MEALS AND BE AT TIME)
  12. VITAMIN B12 [Concomitant]
     Active Substance: CYANOCOBALAMIN
     Dosage: 1000 G, 1X/DAY (ONE TIME DAILY)
  13. DICLOFENAC SODIUM [Concomitant]
     Active Substance: DICLOFENAC\DICLOFENAC SODIUM
     Dosage: UNK, 4X/DAY (IT IS 1 PERCENT AND I PUT THAT ON THE LEFT SIDE OF NECK, 4 TIMES A DAY)
     Route: 061
  14. ALBUTEROL [Concomitant]
     Active Substance: ALBUTEROL
     Dosage: UNK, 4X/DAY (2.5 MILLIGRAMS/ 3 MILLILITERS/I CAN HAVE UP TO 4 TIMES A DAY)
  15. VITAMIN D2 [Concomitant]
     Active Substance: ERGOCALCIFEROL
     Dosage: 50000 MG, WEEKLY (I TAKE ONE GEL CAP ONCE A WEEK)
  16. ATIVAN [Concomitant]
     Active Substance: LORAZEPAM
     Dosage: 2 MG, 1X/DAY (I CAN HAVE UP TO ONCE A DAY)

REACTIONS (6)
  - Fatigue [Recovered/Resolved]
  - Headache [Recovered/Resolved]
  - Movement disorder [Unknown]
  - Asthenia [Unknown]
  - Somnolence [Unknown]
  - Drug intolerance [Unknown]
